FAERS Safety Report 6946484-6 (Version None)
Quarter: 2010Q3

REPORT INFORMATION
  Report Type: 
  Country: None (occurrence: None)
  Receive Date: 20100824
  Receipt Date: 20100816
  Transmission Date: 20110219
  Serious: Yes (Death)
  Sender: FDA-Public Use
  Company Number: GER/USA/10/0015271

PATIENT
  Age: 43 Year
  Sex: Female

DRUGS (8)
  1. SERTRALINE HYDROCHLORIDE [Suspect]
     Indication: PRODUCT USED FOR UNKNOWN INDICATION
  2. FENTANYL-100 [Suspect]
     Indication: PRODUCT USED FOR UNKNOWN INDICATION
     Dosage: 75 MCG, 1 IN 1 HR
  3. ACETAMINOPHEN [Concomitant]
  4. HYDROCODONE BITARTRATE [Concomitant]
  5. BUPROPION HCL [Concomitant]
  6. CARISOPRODOL [Concomitant]
  7. MEPROBAMATE [Concomitant]
  8. PROMETHAZINE [Concomitant]

REACTIONS (2)
  - INHIBITORY DRUG INTERACTION [None]
  - PULMONARY OEDEMA [None]
